FAERS Safety Report 4585409-8 (Version None)
Quarter: 2005Q1

REPORT INFORMATION
  Report Type: 
  Country: None (occurrence: None)
  Receive Date: 20050214
  Receipt Date: 20050126
  Transmission Date: 20050727
  Serious: No
  Sender: FDA-Public Use
  Company Number: F02200500009

PATIENT
  Age: 65 Year
  Sex: Male

DRUGS (4)
  1. XATRAL             (ALFUZOSIN) [Suspect]
     Indication: BENIGN PROSTATIC HYPERPLASIA
     Dosage: 10 MG OD ORAL
     Route: 048
     Dates: start: 20010604
  2. CAPTEA         (CAPTOPRIL/HYDROCHLOROTHIAZIDE) [Concomitant]
  3. PRAVASTATIN [Concomitant]
  4. TANAKAN     (GINKGO BILOBA EXTRACT) [Concomitant]

REACTIONS (1)
  - BASAL CELL CARCINOMA [None]
